FAERS Safety Report 26079989 (Version 2)
Quarter: 2025Q4

REPORT INFORMATION
  Report Type: Spontaneous
  Country: US (occurrence: US)
  Receive Date: 20251124
  Receipt Date: 20251221
  Transmission Date: 20260119
  Serious: No
  Sender: SANOFI AVENTIS
  Company Number: US-SA-2025SA350395

PATIENT
  Sex: Male

DRUGS (10)
  1. DUPIXENT [Suspect]
     Active Substance: DUPILUMAB
     Indication: Neurodermatitis
     Dosage: 600 MG, 1X
     Route: 058
  2. ESOMEPRAZOLE [Concomitant]
     Active Substance: ESOMEPRAZOLE
  3. ESCITALOPRAM [Concomitant]
     Active Substance: ESCITALOPRAM OXALATE
  4. TELMISARTAN [Concomitant]
     Active Substance: TELMISARTAN
  5. CHLORTHALIDONE [Concomitant]
     Active Substance: CHLORTHALIDONE
  6. ATORVASTATIN [Concomitant]
     Active Substance: ATORVASTATIN
  7. DEXAMETHASONE [Concomitant]
     Active Substance: DEXAMETHASONE
  8. CLOBETASOL [Concomitant]
     Active Substance: CLOBETASOL
  9. AMLODIPINE [Concomitant]
     Active Substance: AMLODIPINE BESYLATE
  10. ACYCLOVIR [Concomitant]
     Active Substance: ACYCLOVIR

REACTIONS (3)
  - Wrong technique in product usage process [Unknown]
  - Accidental exposure to product [Unknown]
  - Exposure via skin contact [Unknown]
